FAERS Safety Report 8587333-2 (Version None)
Quarter: 2012Q3

REPORT INFORMATION
  Report Type: 
  Country: None (occurrence: None)
  Receive Date: 20120810
  Receipt Date: 20120208
  Transmission Date: 20120928
  Serious: No
  Sender: FDA-Public Use
  Company Number: US-ASTRAZENECA-2012SE08879

PATIENT
  Age: 64 Year
  Sex: Female
  Weight: 62.1 kg

DRUGS (8)
  1. PRADASTIN [Concomitant]
     Indication: BLOOD CHOLESTEROL
  2. RANITIDINE [Concomitant]
     Indication: GASTROOESOPHAGEAL REFLUX DISEASE
  3. ARIMIDEX [Suspect]
     Dosage: GENERIC FORM
     Route: 048
     Dates: start: 20111101
  4. ARIMIDEX [Suspect]
     Indication: BREAST CANCER
     Route: 048
     Dates: start: 20080101
  5. DOXYCYCLINE HCL [Concomitant]
  6. CEPHALEXIN [Concomitant]
  7. MULTI-VITAMINS [Concomitant]
  8. TRAMADOL HCL [Concomitant]
     Indication: ARTHRALGIA

REACTIONS (9)
  - HEART RATE INCREASED [None]
  - PAIN IN EXTREMITY [None]
  - INSOMNIA [None]
  - LIMB DISCOMFORT [None]
  - DYSPNOEA [None]
  - OEDEMA PERIPHERAL [None]
  - ARTHRALGIA [None]
  - RASH [None]
  - BLOOD CHOLESTEROL INCREASED [None]
